FAERS Safety Report 18955546 (Version 1)
Quarter: 2021Q1

REPORT INFORMATION
  Report Type: Spontaneous
  Country: US (occurrence: US)
  Receive Date: 20210301
  Receipt Date: 20210301
  Transmission Date: 20210420
  Serious: No
  Sender: FDA-Public Use
  Company Number: US-BAUSCH-BL-2021-004499

PATIENT
  Sex: Female

DRUGS (2)
  1. JUBLIA [Suspect]
     Active Substance: EFINACONAZOLE
     Indication: PRODUCT USED FOR UNKNOWN INDICATION
     Route: 061
  2. JUBLIA [Suspect]
     Active Substance: EFINACONAZOLE
     Route: 061

REACTIONS (5)
  - Inappropriate schedule of product administration [Unknown]
  - Product packaging quantity issue [Unknown]
  - Onycholysis [Unknown]
  - Product prescribing error [Unknown]
  - Product container issue [Unknown]
